FAERS Safety Report 9843296 (Version 2)
Quarter: 2014Q1

REPORT INFORMATION
  Report Type: Report from Study
  Country: DE (occurrence: DE)
  Receive Date: 20140125
  Receipt Date: 20140219
  Transmission Date: 20141002
  Serious: Yes (Hospitalization)
  Sender: FDA-Public Use
  Company Number: DE-ROCHE-1337487

PATIENT
  Sex: Male
  Weight: 90 kg

DRUGS (17)
  1. BEVACIZUMAB [Suspect]
     Indication: RECTAL CANCER METASTATIC
     Route: 042
     Dates: start: 20130820, end: 20131023
  2. BEVACIZUMAB [Suspect]
     Route: 042
  3. FLUOROURACIL [Suspect]
     Indication: RECTAL CANCER METASTATIC
     Route: 065
     Dates: start: 201308, end: 201310
  4. OXALIPLATIN [Suspect]
     Indication: RECTAL CANCER METASTATIC
     Route: 065
     Dates: start: 201308, end: 201310
  5. LANTUS [Concomitant]
     Route: 065
  6. ALLOPURINOL [Concomitant]
     Route: 065
  7. ISMN [Concomitant]
     Route: 065
  8. METOHEXAL (GERMANY) [Concomitant]
     Route: 065
  9. MIANSERIN [Concomitant]
     Route: 065
  10. PANTOPRAZOL [Concomitant]
     Route: 065
  11. SIMVASTATIN [Concomitant]
     Route: 065
  12. TAMSULOSIN [Concomitant]
     Route: 065
  13. XIPAMID [Concomitant]
     Route: 065
  14. ZOLPIDEM [Concomitant]
     Route: 065
  15. TOREM [Concomitant]
     Route: 065
  16. INNOHEP [Concomitant]
     Dosage: 14000 IU
     Route: 058
  17. HUMAN INSULIN [Concomitant]
     Route: 058

REACTIONS (3)
  - Faecal incontinence [Recovered/Resolved]
  - Proctalgia [Recovered/Resolved]
  - Rectal haemorrhage [Recovered/Resolved]
